FAERS Safety Report 12715618 (Version 1)
Quarter: 2016Q3

REPORT INFORMATION
  Report Type: Spontaneous
  Country: GB (occurrence: GB)
  Receive Date: 20160906
  Receipt Date: 20160906
  Transmission Date: 20161109
  Serious: Yes (Hospitalization)
  Sender: FDA-Public Use
  Company Number: GB-ACCORD-043699

PATIENT
  Age: 87 Year
  Sex: Female

DRUGS (8)
  1. ADCAL-D3 [Concomitant]
     Active Substance: CALCIUM CARBONATE\CHOLECALCIFEROL
  2. SIMVASTATIN. [Concomitant]
     Active Substance: SIMVASTATIN
  3. FUROSEMIDE. [Suspect]
     Active Substance: FUROSEMIDE
     Indication: PRODUCT USED FOR UNKNOWN INDICATION
     Route: 048
  4. ALENDRONATE SODIUM/ALENDRONIC ACID [Concomitant]
  5. ACETYLSALICYLIC ACID [Concomitant]
     Active Substance: ASPIRIN
  6. CO-CARELDOPA [Concomitant]
     Active Substance: CARBIDOPA\LEVODOPA
  7. LANSOPRAZOLE. [Concomitant]
     Active Substance: LANSOPRAZOLE
  8. DOXAZOSIN [Suspect]
     Active Substance: DOXAZOSIN\DOXAZOSIN MESYLATE
     Indication: PRODUCT USED FOR UNKNOWN INDICATION
     Route: 048

REACTIONS (2)
  - Orthostatic hypotension [Recovering/Resolving]
  - Fall [Unknown]
